FAERS Safety Report 11293490 (Version 2)
Quarter: 2015Q4

REPORT INFORMATION
  Report Type: Spontaneous
  Country: DE (occurrence: DE)
  Receive Date: 20150722
  Receipt Date: 20151019
  Transmission Date: 20160304
  Serious: Yes (Other)
  Sender: FDA-Public Use
  Company Number: DE-OTSUKA-US-2015-10611

PATIENT

DRUGS (2)
  1. ABILIFY MAINTENA [Suspect]
     Active Substance: ARIPIPRAZOLE
     Indication: SCHIZOPHRENIA, PARANOID TYPE
     Dosage: 400 MG, UNK
     Route: 030
     Dates: start: 20141126
  2. ABILIFY MAINTENA [Suspect]
     Active Substance: ARIPIPRAZOLE
     Dosage: 300 MG, UNK
     Route: 030
     Dates: start: 20150129

REACTIONS (3)
  - Maternal exposure during pregnancy [Recovered/Resolved]
  - Drug dose omission [Recovered/Resolved]
  - Abortion induced [Unknown]
